FAERS Safety Report 11587642 (Version 1)
Quarter: 2015Q4

REPORT INFORMATION
  Report Type: Spontaneous
  Country: US (occurrence: US)
  Receive Date: 20151001
  Receipt Date: 20151001
  Transmission Date: 20160304
  Serious: Yes (Other)
  Sender: FDA-Public Use
  Company Number: US-MYLANLABS-2015M1032541

PATIENT

DRUGS (2)
  1. MORPHINE [Suspect]
     Active Substance: MORPHINE
     Indication: BACK PAIN
  2. MORPHINE [Suspect]
     Active Substance: MORPHINE
     Indication: ABDOMINAL PAIN UPPER
     Dosage: EQUIVALENT OF 300 MG/DAY
     Route: 048

REACTIONS (3)
  - Sedation [Unknown]
  - Cognitive disorder [Recovering/Resolving]
  - Urinary retention [Unknown]
